FAERS Safety Report 11705625 (Version 1)
Quarter: 2015Q4

REPORT INFORMATION
  Report Type: Spontaneous
  Country: US (occurrence: US)
  Receive Date: 20151106
  Receipt Date: 20151106
  Transmission Date: 20160304
  Serious: Yes (Hospitalization)
  Sender: FDA-Public Use
  Company Number: US-FRESENIUS KABI-FK201505699

PATIENT
  Age: 42 Year
  Sex: Male

DRUGS (1)
  1. HYDRALAZINE INJECTION (MANUFACTURER UNKNOWN) (HYDRALAZINE HYDROCHLORIDE) (HYDRALAZINE HYDROCHLORIDE) [Suspect]
     Active Substance: HYDRALAZINE HYDROCHLORIDE
     Indication: HYPERTENSION
     Route: 065

REACTIONS (3)
  - Autoimmune disorder [Not Recovered/Not Resolved]
  - Drug-induced liver injury [Not Recovered/Not Resolved]
  - Hepatic failure [Not Recovered/Not Resolved]
